FAERS Safety Report 14674775 (Version 1)
Quarter: 2018Q1

REPORT INFORMATION
  Report Type: Report from Study
  Country: BR (occurrence: BR)
  Receive Date: 20180323
  Receipt Date: 20180323
  Transmission Date: 20180509
  Serious: Yes (Hospitalization)
  Sender: FDA-Public Use
  Company Number: BR-JNJFOC-20180201309

PATIENT
  Age: 30 Year
  Sex: Female
  Weight: 75 kg

DRUGS (6)
  1. VONAU [Concomitant]
     Active Substance: ONDANSETRON HYDROCHLORIDE
     Route: 065
  2. RANITIDINE. [Concomitant]
     Active Substance: RANITIDINE
     Route: 065
  3. DRAMAMINE [Concomitant]
     Active Substance: DIMENHYDRINATE
     Route: 065
  4. SIMPONI [Suspect]
     Active Substance: GOLIMUMAB
     Indication: PSORIATIC ARTHROPATHY
     Route: 058
     Dates: start: 20170512, end: 20171214
  5. SIMPONI [Suspect]
     Active Substance: GOLIMUMAB
     Indication: PSORIATIC ARTHROPATHY
     Route: 058
     Dates: start: 20170512, end: 20171214
  6. FLUOXETIN [Concomitant]
     Active Substance: FLUOXETINE HYDROCHLORIDE
     Route: 065

REACTIONS (3)
  - Exposure during pregnancy [Not Recovered/Not Resolved]
  - Bacterial infection [Unknown]
  - Viral infection [Unknown]

NARRATIVE: CASE EVENT DATE: 201801
